FAERS Safety Report 9523757 (Version 4)
Quarter: 2014Q1

REPORT INFORMATION
  Report Type: Report from Study
  Country: JP (occurrence: JP)
  Receive Date: 20130915
  Receipt Date: 20140110
  Transmission Date: 20141002
  Serious: Yes (Hospitalization)
  Sender: FDA-Public Use
  Company Number: PHHO2013JP011725

PATIENT
  Age: 63 Year
  Sex: Male
  Weight: 73 kg

DRUGS (17)
  1. ACZ885 [Suspect]
     Indication: CARDIOVASCULAR EVENT PROPHYLAXIS
     Dosage: 300 MG, UNK
     Route: 058
     Dates: start: 20130513
  2. BAYASPIRIN [Suspect]
     Indication: ISCHAEMIC HEART DISEASE PROPHYLAXIS
     Dosage: 100 MG, QD
     Route: 048
     Dates: start: 20100510
  3. BAYASPIRIN [Suspect]
     Dosage: UNK
  4. MAINTATE [Concomitant]
     Indication: HYPERTENSION
     Dosage: 5 MG, UNK
     Route: 048
     Dates: start: 20100510
  5. NORVASC [Concomitant]
     Indication: HYPERTENSION
     Dosage: 5 MG, UNK
     Route: 048
     Dates: start: 20100620
  6. WARFARIN [Concomitant]
     Indication: ISCHAEMIC HEART DISEASE PROPHYLAXIS
     Dosage: 2 MG, UNK
     Route: 048
     Dates: start: 20120227
  7. WARFARIN [Concomitant]
     Dosage: UNK
  8. ECARD [Concomitant]
     Indication: HYPERTENSION
     Dosage: 1 DF, UNK
     Route: 048
     Dates: start: 20121105
  9. ANPLAG [Concomitant]
     Indication: ISCHAEMIC HEART DISEASE PROPHYLAXIS
     Dosage: 300 MG, UNK
     Route: 048
     Dates: start: 20120227
  10. LIPITOR [Concomitant]
     Indication: HYPERLIPIDAEMIA
     Dosage: 10 MG, UNK
     Route: 048
     Dates: start: 20100510
  11. GAMOFA D [Concomitant]
     Indication: PROPHYLAXIS
     Dosage: 20 MG, UNK
     Route: 048
     Dates: start: 20100510
  12. GAMOFA D [Concomitant]
     Indication: GASTROOESOPHAGEAL REFLUX PROPHYLAXIS
  13. XALATAN [Concomitant]
     Indication: GLAUCOMA
     Dosage: 1 DF, UNK
     Route: 047
     Dates: start: 19990414
  14. TRUSOPT [Concomitant]
     Indication: GLAUCOMA
     Dosage: 3 DF, UNK
     Route: 047
     Dates: start: 20080922
  15. NOVORAPID [Concomitant]
     Indication: TYPE 2 DIABETES MELLITUS
     Dosage: 50 IU, UNK
     Route: 058
     Dates: start: 20121119
  16. LEVEMIR [Concomitant]
     Indication: TYPE 2 DIABETES MELLITUS
     Dosage: 34 IU, UNK
     Route: 058
     Dates: start: 20130703
  17. METGLUCO [Concomitant]
     Indication: TYPE 2 DIABETES MELLITUS
     Dosage: 750 MG, UNK
     Route: 048
     Dates: start: 20130605

REACTIONS (1)
  - Small intestine ulcer [Recovered/Resolved]
